FAERS Safety Report 9922100 (Version 1)
Quarter: 2014Q1

REPORT INFORMATION
  Report Type: Spontaneous
  Country: US (occurrence: US)
  Receive Date: 20140225
  Receipt Date: 20140225
  Transmission Date: 20141002
  Serious: No
  Sender: FDA-Public Use
  Company Number: US-009507513-1402USA008263

PATIENT
  Age: 22 Year
  Sex: Female

DRUGS (3)
  1. ETONOGESTREL IMPLANT- UNKNOWN [Suspect]
     Indication: CONTRACEPTION
  2. CARBAMAZEPINE [Suspect]
     Indication: CONVULSION
     Dosage: 200 MG, QID, FOR NINE YEARS;
  3. CARBAMAZEPINE [Suspect]
     Dosage: 400 MG, TID

REACTIONS (1)
  - Unintended pregnancy [Recovered/Resolved]
